FAERS Safety Report 21262982 (Version 2)
Quarter: 2022Q3

REPORT INFORMATION
  Report Type: Spontaneous
  Country: US (occurrence: None)
  Receive Date: 20220828
  Receipt Date: 20220923
  Transmission Date: 20221027
  Serious: Yes (Hospitalization, Other)
  Sender: FDA-Public Use
  Company Number: US-ROCHE-3167945

PATIENT
  Sex: Male

DRUGS (3)
  1. ESBRIET [Suspect]
     Active Substance: PIRFENIDONE
     Indication: Idiopathic pulmonary fibrosis
     Route: 048
     Dates: start: 201608
  2. TYVASO [Concomitant]
     Active Substance: TREPROSTINIL
     Indication: Pulmonary hypertension
     Dates: start: 20220820
  3. TYVASO [Concomitant]
     Active Substance: TREPROSTINIL
     Indication: Hypoxia

REACTIONS (3)
  - Dyspnoea [Unknown]
  - Pneumonitis [Unknown]
  - Fibrosis [Unknown]
